FAERS Safety Report 14083923 (Version 1)
Quarter: 2017Q4

REPORT INFORMATION
  Report Type: Spontaneous
  Country: LT (occurrence: LT)
  Receive Date: 20171013
  Receipt Date: 20171013
  Transmission Date: 20180321
  Serious: Yes (Other)
  Sender: FDA-Public Use
  Company Number: LT-BAYER-2017-190850

PATIENT
  Sex: Female

DRUGS (1)
  1. MIRENA [Suspect]
     Active Substance: LEVONORGESTREL
     Dosage: UNK
     Route: 015

REACTIONS (16)
  - Back pain [None]
  - Anxiety [Not Recovered/Not Resolved]
  - Headache [None]
  - Night sweats [None]
  - Stress [None]
  - Rash [None]
  - Insomnia [None]
  - General physical health deterioration [None]
  - Malaise [None]
  - Panic attack [Recovered/Resolved]
  - Feeling abnormal [None]
  - Fear [None]
  - Acne [None]
  - Dyspepsia [None]
  - Amenorrhoea [None]
  - Negative thoughts [None]
